FAERS Safety Report 5690526-5 (Version None)
Quarter: 2008Q2

REPORT INFORMATION
  Report Type: 
  Country: None (occurrence: None)
  Receive Date: 20080401
  Receipt Date: 20040824
  Transmission Date: 20081010
  Serious: Yes (Death)
  Sender: FDA-Public Use
  Company Number: US-ROCHE-378696

PATIENT
  Age: 43 Year
  Sex: Male

DRUGS (4)
  1. MYCOPHENOLATE MOFETIL [Suspect]
     Route: 048
     Dates: start: 20000101, end: 20000101
  2. MYCOPHENOLATE MOFETIL [Suspect]
     Route: 048
     Dates: start: 20040404, end: 20040815
  3. NEORAL [Concomitant]
     Route: 048
  4. RAPAMUNE [Concomitant]
     Route: 048

REACTIONS (1)
  - NEOPLASM MALIGNANT [None]
